FAERS Safety Report 7885500-4 (Version None)
Quarter: 2011Q4

REPORT INFORMATION
  Report Type: 
  Country: None (occurrence: None)
  Receive Date: 20111102
  Receipt Date: 20111024
  Transmission Date: 20120403
  Serious: Yes (Hospitalization)
  Sender: FDA-Public Use
  Company Number: US-CELGENEUS-163-21880-11102848

PATIENT
  Sex: Male

DRUGS (14)
  1. AMLODIPINE [Concomitant]
     Route: 065
  2. FLONASE [Concomitant]
     Route: 065
  3. MONOPRIL [Concomitant]
     Route: 065
  4. REVLIMID [Suspect]
     Indication: MULTIPLE MYELOMA
     Dosage: 25 MILLIGRAM
     Route: 048
     Dates: start: 20110601
  5. ADVAIR DISKUS 100/50 [Concomitant]
     Route: 065
  6. NEXIUM [Concomitant]
     Route: 065
  7. REVLIMID [Suspect]
     Dosage: 5 MILLIGRAM
     Route: 048
     Dates: start: 20110901
  8. GLIMEPIRIDE [Concomitant]
     Route: 065
  9. METFORMIN HCL [Concomitant]
     Route: 065
  10. ACYCLOVIR [Concomitant]
     Route: 065
  11. ALLEGRA [Concomitant]
     Route: 065
  12. FOLIC ACID [Concomitant]
     Route: 065
  13. ASTEPRO [Concomitant]
     Route: 065
  14. HUMULIN R [Concomitant]
     Route: 065

REACTIONS (2)
  - GALLBLADDER DISORDER [None]
  - BLISTER [None]
